FAERS Safety Report 7527298-5 (Version None)
Quarter: 2011Q2

REPORT INFORMATION
  Report Type: 
  Country: None (occurrence: None)
  Receive Date: 20110509
  Receipt Date: 20110311
  Transmission Date: 20111010
  Serious: No
  Sender: FDA-Public Use
  Company Number: 2011000028

PATIENT
  Age: 47 Year
  Sex: Female

DRUGS (1)
  1. ULESFIA [Suspect]
     Indication: LICE INFESTATION
     Dosage: 2 AND 1/2 BOTTLES, ONE APPLICATION
     Dates: start: 20110310, end: 20110310

REACTIONS (1)
  - PRURITUS [None]
